FAERS Safety Report 7702033-6 (Version None)
Quarter: 2011Q3

REPORT INFORMATION
  Report Type: 
  Country: None (occurrence: None)
  Receive Date: 20110822
  Receipt Date: 20110817
  Transmission Date: 20111222
  Serious: Yes (Death, Hospitalization)
  Sender: FDA-Public Use
  Company Number: UG-PFIZER INC-2011174286

PATIENT
  Age: 36 Year
  Sex: Female

DRUGS (12)
  1. RIFABUTIN [Suspect]
     Dosage: UNK
     Dates: start: 20110617, end: 20110729
  2. RIFABUTIN [Suspect]
     Dosage: UNK
     Dates: start: 20110811
  3. ISONIAZID [Suspect]
     Dosage: UNK
     Dates: start: 20110617, end: 20110729
  4. ISONIAZID [Suspect]
     Dosage: UNK
     Dates: start: 20110811
  5. KALETRA [Concomitant]
     Dosage: UNK
     Dates: start: 20110317
  6. SEPTRA [Concomitant]
     Dosage: UNK
     Dates: start: 20070914
  7. ETHAMBUTOL [Concomitant]
     Dosage: UNK
     Dates: start: 20110617, end: 20110729
  8. ETHAMBUTOL [Concomitant]
     Dosage: UNK
     Dates: start: 20110811, end: 20110815
  9. AMIKACIN [Concomitant]
     Dosage: UNK
     Dates: start: 20110705, end: 20110715
  10. PYRAZINAMIDE [Suspect]
     Dosage: UNK
     Dates: start: 20110617, end: 20110729
  11. KALETRA [Concomitant]
     Dosage: UNK
  12. PYRAZINAMIDE [Suspect]
     Dosage: UNK
     Dates: start: 20110811

REACTIONS (2)
  - GASTRITIS [None]
  - HEPATITIS [None]
